FAERS Safety Report 9372478 (Version 1)
Quarter: 2013Q2

REPORT INFORMATION
  Report Type: Report from Study
  Country: US (occurrence: US)
  Receive Date: 20130627
  Receipt Date: 20130627
  Transmission Date: 20140414
  Serious: Yes (Death)
  Sender: FDA-Public Use
  Company Number: US-MYLANLABS-2012S1025789

PATIENT
  Age: 44 Year
  Sex: Male

DRUGS (4)
  1. CLOZAPINE TABLETS [Suspect]
     Route: 048
  2. GABAPENTIN [Concomitant]
  3. LORAZEPAM [Concomitant]
  4. COGENTIN [Concomitant]

REACTIONS (2)
  - Cerebrovascular accident [Fatal]
  - Brain neoplasm [Fatal]
